FAERS Safety Report 4726909-7 (Version None)
Quarter: 2005Q3

REPORT INFORMATION
  Report Type: 
  Country: None (occurrence: None)
  Receive Date: 20050725
  Receipt Date: 20050725
  Transmission Date: 20060218
  Serious: Yes (Disabling)
  Sender: FDA-Public Use
  Company Number: None

PATIENT
  Age: 63 Year
  Sex: Female
  Weight: 104.3273 kg

DRUGS (2)
  1. LEVAQUIN [Suspect]
     Indication: PNEUMONIA BACTERIAL
     Dosage: IVS  2 OR 3 TIMES INTRAVENOUS
     Route: 042
  2. LEVAQUIN [Suspect]
     Dosage: 500MG TAB 1 DAY/7 DAYS ORAL
     Route: 048

REACTIONS (8)
  - ARTHRALGIA [None]
  - HALLUCINATION [None]
  - HYPOGLYCAEMIA [None]
  - MOBILITY DECREASED [None]
  - NEUROPATHY [None]
  - PAIN IN EXTREMITY [None]
  - PARAESTHESIA [None]
  - TREMOR [None]
